FAERS Safety Report 24673929 (Version 2)
Quarter: 2025Q2

REPORT INFORMATION
  Report Type: Spontaneous
  Country: GB (occurrence: GB)
  Receive Date: 20241128
  Receipt Date: 20250606
  Transmission Date: 20250717
  Serious: Yes (Hospitalization, Other)
  Sender: RANBAXY
  Company Number: GB-SUN PHARMACEUTICAL INDUSTRIES LTD-2024R1-481420

PATIENT
  Age: 4 Decade
  Sex: Male
  Weight: 47.8 kg

DRUGS (3)
  1. METHADONE [Interacting]
     Active Substance: METHADONE HYDROCHLORIDE
     Indication: Withdrawal syndrome
     Dosage: 40 MILLIGRAM, OD
     Route: 065
  2. METHADONE [Interacting]
     Active Substance: METHADONE HYDROCHLORIDE
     Dosage: 57.5 MILLIGRAM, BID
     Route: 065
  3. RIFAMPIN [Interacting]
     Active Substance: RIFAMPIN
     Indication: Atypical mycobacterial infection
     Dosage: 450 MILLIGRAM, OD
     Route: 065

REACTIONS (3)
  - Drug interaction [Unknown]
  - Hyperhidrosis [Recovering/Resolving]
  - Tachycardia [Recovering/Resolving]
